FAERS Safety Report 14902105 (Version 5)
Quarter: 2018Q3

REPORT INFORMATION
  Report Type: Spontaneous
  Country: US (occurrence: US)
  Receive Date: 20180516
  Receipt Date: 20180914
  Transmission Date: 20181010
  Serious: Yes (Hospitalization, Other)
  Sender: FDA-Public Use
  Company Number: US-PFIZER INC-2018198817

PATIENT
  Age: 77 Year
  Sex: Female

DRUGS (8)
  1. LETROZOLE. [Concomitant]
     Active Substance: LETROZOLE
     Indication: BREAST CANCER
     Dosage: UNK
  2. PRAVASTATIN. [Concomitant]
     Active Substance: PRAVASTATIN
     Indication: HYPERLIPIDAEMIA
     Dosage: UNK
  3. HYDROCODONE [Concomitant]
     Active Substance: HYDROCODONE
     Indication: PAIN
     Dosage: UNK
  4. OMEPRAZOLE. [Concomitant]
     Active Substance: OMEPRAZOLE
     Indication: GASTROOESOPHAGEAL REFLUX DISEASE
     Dosage: UNK
  5. IBRANCE [Suspect]
     Active Substance: PALBOCICLIB
     Dosage: 125 MG, DAILY
     Route: 048
     Dates: start: 201803, end: 201806
  6. OXYTOCIN. [Concomitant]
     Active Substance: OXYTOCIN
     Indication: PAIN
     Dosage: UNK
  7. IBRANCE [Suspect]
     Active Substance: PALBOCICLIB
     Indication: BREAST CANCER FEMALE
     Dosage: 125 MG, CYCLIC (DAILY FOR 21 DAYS EVERY 4 WEEKS)
     Route: 048
     Dates: start: 20180301, end: 20180622
  8. IBRANCE [Suspect]
     Active Substance: PALBOCICLIB
     Indication: BREAST CANCER METASTATIC
     Dosage: 125 MG, CYCLIC (DAILY 21 DAYS)
     Route: 048
     Dates: start: 20180511

REACTIONS (10)
  - Nausea [Not Recovered/Not Resolved]
  - Weight decreased [Unknown]
  - Asthenia [Not Recovered/Not Resolved]
  - Pulmonary oedema [Unknown]
  - Neoplasm progression [Unknown]
  - Fatigue [Not Recovered/Not Resolved]
  - Hot flush [Unknown]
  - Insomnia [Unknown]
  - Malignant pleural effusion [Not Recovered/Not Resolved]
  - Decreased appetite [Not Recovered/Not Resolved]

NARRATIVE: CASE EVENT DATE: 201803
